FAERS Safety Report 9923439 (Version 2)
Quarter: 2014Q1

REPORT INFORMATION
  Report Type: Spontaneous
  Country: US (occurrence: US)
  Receive Date: 20140225
  Receipt Date: 20140225
  Transmission Date: 20141002
  Serious: No
  Sender: FDA-Public Use
  Company Number: US-AMGEN-USASP2013073282

PATIENT
  Age: 48 Year
  Sex: Female

DRUGS (1)
  1. ENBREL [Suspect]
     Indication: RHEUMATOID ARTHRITIS
     Dosage: UNK UNK, QWK
     Route: 065
     Dates: start: 20070701

REACTIONS (4)
  - Food allergy [Not Recovered/Not Resolved]
  - Asthma [Recovered/Resolved]
  - Respiratory tract congestion [Recovered/Resolved]
  - Urticaria [Recovered/Resolved]
